FAERS Safety Report 21488181 (Version 1)
Quarter: 2022Q4

REPORT INFORMATION
  Report Type: Spontaneous
  Country: US (occurrence: None)
  Receive Date: 20221020
  Receipt Date: 20221020
  Transmission Date: 20230112
  Serious: No
  Sender: FDA-Public Use
  Company Number: None

PATIENT
  Sex: Female

DRUGS (1)
  1. AMBRISENTAN [Suspect]
     Active Substance: AMBRISENTAN
     Indication: Pulmonary arterial hypertension
     Dosage: FREQUENCY : DAILY;?
     Route: 048
     Dates: start: 20220814

REACTIONS (11)
  - Asthenia [None]
  - Dysstasia [None]
  - Vomiting [None]
  - Dyspnoea [None]
  - Generalised oedema [None]
  - Swelling face [None]
  - Weight increased [None]
  - Decreased appetite [None]
  - Urine output decreased [None]
  - Skin discolouration [None]
  - Cyanosis [None]
